FAERS Safety Report 9440942 (Version 1)
Quarter: 2013Q3

REPORT INFORMATION
  Report Type: Spontaneous
  Country: US (occurrence: US)
  Receive Date: 20130805
  Receipt Date: 20130805
  Transmission Date: 20140515
  Serious: Yes (Hospitalization)
  Sender: FDA-Public Use
  Company Number: US-B.I. PHARMACEUTICALS,INC./RIDGEFIELD-2013-BI-22905BP

PATIENT
  Age: 82 Year
  Sex: Female
  Weight: 68 kg

DRUGS (6)
  1. SPIRIVA [Suspect]
     Indication: EMPHYSEMA
     Dosage: 18 MCG
     Route: 055
     Dates: start: 2009
  2. LISINOPRIL [Concomitant]
     Indication: HYPERTENSION
     Dosage: 2.5 MG
     Route: 048
  3. ADVAIR [Concomitant]
     Indication: EMPHYSEMA
     Dosage: FORMULATION:INHALATION AEROSOL, STRENGTH: 500 MCG / 50 MCG; DAILY DOSE: 500 MCG / 50 MCG
     Route: 055
  4. PROAIR [Concomitant]
     Indication: EMPHYSEMA
     Dosage: FORMULATION: INHALATION AEROSOL
     Route: 055
  5. ALBUTEROL NEBULIZER [Concomitant]
     Indication: EMPHYSEMA
     Dosage: FORMULATION: INHALATION SOLUTION
     Route: 055
  6. METFORMIN [Concomitant]
     Indication: DIABETES MELLITUS
     Dosage: 500 MG
     Route: 048

REACTIONS (8)
  - Pneumonia [Recovered/Resolved]
  - Oral mucosal blistering [Recovered/Resolved]
  - Blister [Recovered/Resolved]
  - Fall [Recovered/Resolved]
  - Arthralgia [Not Recovered/Not Resolved]
  - Weight decreased [Recovered/Resolved]
  - Decreased appetite [Recovered/Resolved]
  - Increased tendency to bruise [Not Recovered/Not Resolved]
